FAERS Safety Report 16265105 (Version 1)
Quarter: 2019Q2

REPORT INFORMATION
  Report Type: Spontaneous
  Country: US (occurrence: US)
  Receive Date: 20190501
  Receipt Date: 20190501
  Transmission Date: 20190711
  Serious: Yes (Other)
  Sender: FDA-Public Use
  Company Number: None

PATIENT
  Age: 76 Year
  Sex: Female

DRUGS (5)
  1. HUMIRA [Suspect]
     Active Substance: ADALIMUMAB
     Indication: RHEUMATOID ARTHRITIS
     Dosage: ?          OTHER FREQUENCY:EVERY 2 WEEKS;?
     Route: 058
     Dates: start: 20170710, end: 20190401
  2. OXYBUTYNIN TABLET 10MG [Concomitant]
     Dates: start: 20190213, end: 20190412
  3. OMEPRAZOLE CAPSULE 20MG [Concomitant]
     Dates: start: 20181205, end: 20190304
  4. CEPHALEXIN CAPSULE 500MG [Concomitant]
     Dates: start: 20190407, end: 20190408
  5. DEXAMETHASONE PHO SOL 0.1% OP [Concomitant]
     Dates: start: 20190221

REACTIONS (2)
  - Ovarian neoplasm [None]
  - Ovarian cyst [None]

NARRATIVE: CASE EVENT DATE: 20190430
